FAERS Safety Report 8271212-4 (Version None)
Quarter: 2012Q2

REPORT INFORMATION
  Report Type: 
  Country: None (occurrence: None)
  Receive Date: 20120406
  Receipt Date: 20120404
  Transmission Date: 20120825
  Serious: Yes (Hospitalization, Other)
  Sender: FDA-Public Use
  Company Number: ADR-2011-10970

PATIENT
  Age: 57 Year
  Sex: Male

DRUGS (1)
  1. BACLOFEN [Suspect]
     Indication: MUSCLE SPASTICITY
     Dosage: DAILY, INTRATH
     Route: 037

REACTIONS (3)
  - DEVICE DAMAGE [None]
  - IMPLANT SITE SWELLING [None]
  - ABDOMINAL DISTENSION [None]
